FAERS Safety Report 23542548 (Version 1)
Quarter: 2024Q1

REPORT INFORMATION
  Report Type: Spontaneous
  Country: US (occurrence: US)
  Receive Date: 20240220
  Receipt Date: 20240220
  Transmission Date: 20240410
  Serious: Yes (Other)
  Sender: FDA-Public Use
  Company Number: US-AUROBINDO-AUR-APL-2024-006803

PATIENT
  Age: 30 Year
  Sex: Female

DRUGS (5)
  1. AMLODIPINE [Suspect]
     Active Substance: AMLODIPINE BESYLATE
     Indication: Product used for unknown indication
     Dosage: 23.7 MILLIGRAM
     Route: 065
  2. LISINOPRIL [Suspect]
     Active Substance: LISINOPRIL
     Indication: Product used for unknown indication
     Dosage: 23.7 MILLIGRAM
     Route: 048
  3. LUPKYNIS [Suspect]
     Active Substance: VOCLOSPORIN
     Indication: Lupus nephritis
     Dosage: 23.7 MILLIGRAM, TWO TIMES A DAY
     Route: 048
     Dates: start: 20220315
  4. LABETALOL [Concomitant]
     Active Substance: LABETALOL\LABETALOL HYDROCHLORIDE
     Indication: Product used for unknown indication
     Dosage: UNK
     Route: 065
  5. FUROSEMIDE [Concomitant]
     Active Substance: FUROSEMIDE
     Indication: Product used for unknown indication
     Dosage: UNK
     Route: 065

REACTIONS (13)
  - Angioedema [Unknown]
  - Osteonecrosis [Unknown]
  - Hypertension [Recovering/Resolving]
  - Oxygen saturation decreased [Unknown]
  - Arthralgia [Not Recovered/Not Resolved]
  - Drug hypersensitivity [Unknown]
  - Fatigue [Recovering/Resolving]
  - Joint swelling [Not Recovered/Not Resolved]
  - Migraine [Recovered/Resolved]
  - Oedema [Recovering/Resolving]
  - Pain [Unknown]
  - Raynaud^s phenomenon [Unknown]
  - Swollen tongue [Unknown]
